FAERS Safety Report 7437702-9 (Version None)
Quarter: 2011Q2

REPORT INFORMATION
  Report Type: 
  Country: None (occurrence: None)
  Receive Date: 20110426
  Receipt Date: 20110425
  Transmission Date: 20111010
  Serious: No
  Sender: FDA-Public Use
  Company Number: US-PFIZER INC-2006029342

PATIENT
  Sex: Female

DRUGS (4)
  1. SYNTHROID [Suspect]
     Dosage: 50 UG, UNK
  2. NORVASC [Suspect]
     Indication: BLOOD PRESSURE ABNORMAL
     Dosage: 10 MG, UNK
     Route: 048
     Dates: end: 20100101
  3. VALSARTAN [Suspect]
     Dosage: 80 MG, UNK
     Route: 065
  4. AMLODIPINE BESYLATE [Suspect]
     Dosage: UNK
     Route: 048
     Dates: start: 20100101

REACTIONS (2)
  - CONSTIPATION [None]
  - BLOOD PRESSURE INADEQUATELY CONTROLLED [None]
